FAERS Safety Report 8530172-9 (Version None)
Quarter: 2012Q3

REPORT INFORMATION
  Report Type: 
  Country: None (occurrence: None)
  Receive Date: 20120723
  Receipt Date: 20120719
  Transmission Date: 20120928
  Serious: Yes (Death, Hospitalization)
  Sender: FDA-Public Use
  Company Number: PHHY2012EC038853

PATIENT
  Sex: Male

DRUGS (1)
  1. EXELON [Suspect]
     Indication: DEMENTIA ALZHEIMER'S TYPE
     Dosage: 9.5 MG/ 10 CM1, 1 PATCH EVERY TWO DAYS
     Route: 062
     Dates: start: 20100627, end: 20120623

REACTIONS (10)
  - LUNG INFECTION [None]
  - PALLOR [None]
  - GAIT DISTURBANCE [None]
  - PULMONARY TUBERCULOSIS [None]
  - COUGH [None]
  - DYSPNOEA [None]
  - DIABETIC COMA [None]
  - DRUG RESISTANCE [None]
  - WRONG TECHNIQUE IN DRUG USAGE PROCESS [None]
  - PHARYNGITIS [None]
